FAERS Safety Report 11689420 (Version 2)
Quarter: 2016Q4

REPORT INFORMATION
  Report Type: Spontaneous
  Country: US (occurrence: US)
  Receive Date: 20151102
  Receipt Date: 20161219
  Transmission Date: 20170206
  Serious: Yes (Other)
  Sender: FDA-Public Use
  Company Number: US-ELI_LILLY_AND_COMPANY-US201510006610

PATIENT
  Sex: Male
  Weight: 105.67 kg

DRUGS (2)
  1. CYMBALTA [Suspect]
     Active Substance: DULOXETINE HYDROCHLORIDE
     Indication: PAIN
     Dosage: 30 MG, QD
     Route: 048
     Dates: start: 20120531, end: 20130224
  2. CYMBALTA [Suspect]
     Active Substance: DULOXETINE HYDROCHLORIDE
     Indication: DEPRESSION
     Dosage: 60 MG, QD
     Route: 048
     Dates: start: 20130224, end: 20140409

REACTIONS (22)
  - Paraesthesia [Unknown]
  - Vertigo [Unknown]
  - Confusional state [Unknown]
  - Vomiting [Unknown]
  - Suicidal ideation [Unknown]
  - Hypomania [Unknown]
  - Sleep disorder [Unknown]
  - Dysphoria [Unknown]
  - Nausea [Unknown]
  - Anxiety [Unknown]
  - Fatigue [Unknown]
  - Dizziness [Unknown]
  - Drug withdrawal syndrome [Unknown]
  - Sensory disturbance [Unknown]
  - Diarrhoea [Unknown]
  - Headache [Unknown]
  - Insomnia [Unknown]
  - Mood swings [Unknown]
  - Irritability [Unknown]
  - Agitation [Unknown]
  - Lethargy [Unknown]
  - Affect lability [Unknown]
